FAERS Safety Report 24237605 (Version 2)
Quarter: 2024Q3

REPORT INFORMATION
  Report Type: Spontaneous
  Country: AU (occurrence: AU)
  Receive Date: 20240822
  Receipt Date: 20240926
  Transmission Date: 20241016
  Serious: No
  Sender: PFIZER
  Company Number: AU-PFIZER INC-202400238553

PATIENT
  Age: 63 Year
  Sex: Female

DRUGS (1)
  1. ENBREL [Suspect]
     Active Substance: ETANERCEPT
     Indication: Rheumatoid arthritis
     Dosage: UNK
     Dates: start: 202406

REACTIONS (1)
  - Injection site pain [Unknown]
